FAERS Safety Report 10214345 (Version 3)
Quarter: 2014Q3

REPORT INFORMATION
  Report Type: Spontaneous
  Country: US (occurrence: US)
  Receive Date: 20140603
  Receipt Date: 20140826
  Transmission Date: 20150326
  Serious: Yes (Other)
  Sender: FDA-Public Use
  Company Number: US-BAYER-2014-082537

PATIENT
  Age: 15 Year
  Sex: Female

DRUGS (1)
  1. OCELLA [Suspect]
     Active Substance: DROSPIRENONE\ETHINYL ESTRADIOL
     Dosage: UNK
     Dates: start: 200606

REACTIONS (8)
  - General physical health deterioration [None]
  - Pain [None]
  - Pain in extremity [None]
  - Deep vein thrombosis [None]
  - Myocardial infarction [None]
  - Hypoaesthesia [None]
  - Injury [None]
  - Headache [None]

NARRATIVE: CASE EVENT DATE: 2007
